FAERS Safety Report 25401841 (Version 1)
Quarter: 2025Q2

REPORT INFORMATION
  Report Type: Spontaneous
  Country: US (occurrence: US)
  Receive Date: 20250605
  Receipt Date: 20250605
  Transmission Date: 20250717
  Serious: Yes (Other)
  Sender: PFIZER
  Company Number: US-PFIZER INC-202500113204

PATIENT
  Age: 42 Year
  Sex: Female

DRUGS (1)
  1. LORBRENA [Suspect]
     Active Substance: LORLATINIB
     Indication: Non-small cell lung cancer
     Dosage: 100MG DAILY BY MOUTH
     Route: 048

REACTIONS (2)
  - Non-small cell lung cancer [Unknown]
  - Malignant neoplasm progression [Unknown]
